FAERS Safety Report 6788514-0 (Version None)
Quarter: 2010Q2

REPORT INFORMATION
  Report Type: 
  Country: None (occurrence: None)
  Receive Date: 20100623
  Receipt Date: 20080317
  Transmission Date: 20101027
  Serious: No
  Sender: FDA-Public Use
  Company Number: US-PFIZER INC-2008024633

PATIENT
  Sex: Male
  Weight: 84.09 kg

DRUGS (5)
  1. CADUET [Suspect]
     Indication: BLOOD CHOLESTEROL INCREASED
     Dosage: 5/80MG
     Dates: start: 20060101
  2. ACETYLSALICYLIC ACID [Concomitant]
     Dates: start: 20060101
  3. IBUPROFEN [Concomitant]
     Dates: start: 20060101
  4. GABAPENTIN [Concomitant]
     Dates: start: 20060101
  5. VITAMIN C [Concomitant]
     Dates: start: 20060101

REACTIONS (1)
  - MUSCLE SPASMS [None]
